FAERS Safety Report 24762770 (Version 1)
Quarter: 2024Q4

REPORT INFORMATION
  Report Type: Spontaneous
  Country: IT (occurrence: IT)
  Receive Date: 20241222
  Receipt Date: 20241222
  Transmission Date: 20250115
  Serious: Yes (Hospitalization)
  Sender: AUROBINDO
  Company Number: IT-MINISAL02-1015489

PATIENT
  Age: 21 Year
  Sex: Male

DRUGS (2)
  1. IBUPROFEN [Suspect]
     Active Substance: IBUPROFEN
     Indication: Product used for unknown indication
     Dosage: SINGLE ADMINISTRATION OF 8 GRAMS OF IBUPROFEN  (UNICA SOMMINISTRAZIONE DI 8 GRAMMI DI IBUPROFENE
     Route: 048
     Dates: start: 20240110, end: 20240110
  2. ACETAMINOPHEN [Suspect]
     Active Substance: ACETAMINOPHEN
     Indication: Product used for unknown indication
     Dosage: SINGLE ADMINISTRATION OF 18 GRAMS OF PARACETAMOL (UNICA SOMMINISTRAZIONE DI 18 GRAMMI DI PARACETAMOL
     Route: 048
     Dates: start: 20240110, end: 20240110

REACTIONS (1)
  - Intentional overdose [Recovered/Resolved]

NARRATIVE: CASE EVENT DATE: 20240110
